FAERS Safety Report 6294908-2 (Version None)
Quarter: 2009Q3

REPORT INFORMATION
  Report Type: 
  Country: None (occurrence: None)
  Receive Date: 20090731
  Receipt Date: 20090731
  Transmission Date: 20100115
  Serious: Yes (Other)
  Sender: FDA-Public Use
  Company Number: None

PATIENT
  Age: 47 Year
  Sex: Male
  Weight: 108.8633 kg

DRUGS (2)
  1. NIASPAN [Suspect]
     Indication: BLOOD CHOLESTEROL
     Dosage: 1 PILL AT NIGHT OTHER
     Route: 050
     Dates: start: 20090601, end: 20090719
  2. NIASPAN [Suspect]
     Indication: BLOOD TRIGLYCERIDES INCREASED
     Dosage: 1 PILL AT NIGHT OTHER
     Route: 050
     Dates: start: 20090601, end: 20090719

REACTIONS (5)
  - COLD SWEAT [None]
  - FEELING HOT [None]
  - FLUSHING [None]
  - LOSS OF CONSCIOUSNESS [None]
  - PALLOR [None]
